FAERS Safety Report 18622804 (Version 1)
Quarter: 2020Q4

REPORT INFORMATION
  Report Type: Spontaneous
  Country: US (occurrence: US)
  Receive Date: 20201216
  Receipt Date: 20201216
  Transmission Date: 20210114
  Serious: No
  Sender: FDA-Public Use
  Company Number: US-ITALFARMACO SPA-2103042

PATIENT
  Age: 63 Year
  Sex: Female

DRUGS (18)
  1. GARLIC OIL [Concomitant]
     Active Substance: GARLIC OIL
  2. TIGLUTIK [Suspect]
     Active Substance: RILUZOLE
     Indication: AMYOTROPHIC LATERAL SCLEROSIS
     Dates: start: 20200311, end: 20200917
  3. VITAMIN C [Concomitant]
     Active Substance: ASCORBIC ACID
  4. CREATINE [Concomitant]
     Active Substance: CREATINE
  5. OMEGA 3 [Concomitant]
     Active Substance: OMEGA-3 FATTY ACIDS
  6. POTASSIUM CHLORIDE. [Concomitant]
     Active Substance: POTASSIUM CHLORIDE
  7. RED YEAST RICE EXTRACT [Concomitant]
  8. RESVERATROL [Concomitant]
     Active Substance: DIETARY SUPPLEMENT\RESVERATROL
  9. VITAMIN B COMPLEX [Concomitant]
     Active Substance: CYANOCOBALAMIN\DEXPANTHENOL\NIACINAMIDE\PYRIDOXINE HYDROCHLORIDE\RIBOFLAVIN 5^-PHOSPHATE SODIUM\THIAMINE HYDROCHLORIDE\VITAMIN B COMPLEX
  10. COENZYME Q10 [Concomitant]
     Active Substance: DIETARY SUPPLEMENT\UBIDECARENONE
  11. GLUTATHIONE [Concomitant]
     Active Substance: GLUTATHIONE
  12. LUTEIN 20 [Concomitant]
  13. PROBIOTIC [Concomitant]
     Active Substance: PROBIOTICS NOS
  14. VITAMIN D [Concomitant]
     Active Substance: VITAMIN D NOS
  15. ASTAXANTHIN [Concomitant]
     Active Substance: ASTAXANTHIN
  16. PYCNOGENOL [Concomitant]
     Active Substance: DIETARY SUPPLEMENT
  17. GINSENG [Concomitant]
     Active Substance: ASIAN GINSENG
  18. MULTIVITAMIN [Concomitant]
     Active Substance: VITAMINS

REACTIONS (1)
  - Blood pressure increased [Recovered/Resolved]
